FAERS Safety Report 6340053-7 (Version None)
Quarter: 2009Q3

REPORT INFORMATION
  Report Type: 
  Country: None (occurrence: None)
  Receive Date: 20090903
  Receipt Date: 20090825
  Transmission Date: 20100115
  Serious: Yes (Hospitalization, Other)
  Sender: FDA-Public Use
  Company Number: KR-GENENTECH-289629

PATIENT

DRUGS (4)
  1. MABTHERA [Suspect]
     Indication: B-CELL LYMPHOMA
     Dosage: 375 MG/M2, Q3W
     Route: 065
  2. CYCLOPHOSPHAMIDE [Suspect]
     Indication: B-CELL LYMPHOMA
     Dosage: 750 MG/M2, Q3W
     Route: 042
  3. VINCRISTINE [Suspect]
     Indication: B-CELL LYMPHOMA
     Dosage: UNK
     Route: 042
  4. PREDNISOLONE [Suspect]
     Indication: B-CELL LYMPHOMA
     Dosage: 100 MG, UNK
     Route: 048

REACTIONS (3)
  - DRUG TOXICITY [None]
  - FEBRILE NEUTROPENIA [None]
  - NEUTROPENIA [None]
